FAERS Safety Report 7610278-9 (Version None)
Quarter: 2011Q3

REPORT INFORMATION
  Report Type: 
  Country: None (occurrence: None)
  Receive Date: 20110715
  Receipt Date: 20110706
  Transmission Date: 20111222
  Serious: Yes (Other)
  Sender: FDA-Public Use
  Company Number: US-SHIRE-ALL1-2011-02120

PATIENT
  Weight: 122.45 kg

DRUGS (2)
  1. VYVANSE [Suspect]
     Indication: ATTENTION DEFICIT/HYPERACTIVITY DISORDER
     Dosage: 50 MG, 1X/DAY:QD
     Route: 048
     Dates: end: 20110601
  2. VYVANSE [Suspect]
     Dosage: 60 MG, 1X/DAY:QD
     Route: 048
     Dates: start: 20110601, end: 20110630

REACTIONS (7)
  - PAIN IN EXTREMITY [None]
  - ANXIETY [None]
  - NAUSEA [None]
  - CHEST PAIN [None]
  - INFLUENZA LIKE ILLNESS [None]
  - CHEST DISCOMFORT [None]
  - HEART RATE IRREGULAR [None]
